FAERS Safety Report 5400585-2 (Version None)
Quarter: 2007Q3

REPORT INFORMATION
  Report Type: 
  Country: None (occurrence: None)
  Receive Date: 20070730
  Receipt Date: 20060606
  Transmission Date: 20080115
  Serious: No
  Sender: FDA-Public Use
  Company Number: A0608090A

PATIENT
  Sex: Female

DRUGS (2)
  1. ZANTAC 150 [Suspect]
     Indication: GALLBLADDER DISORDER
     Dosage: 150MG UNKNOWN
     Route: 048
  2. THYROID TAB [Concomitant]

REACTIONS (1)
  - EXPIRED DRUG ADMINISTERED [None]
